FAERS Safety Report 5411972-0 (Version None)
Quarter: 2007Q3

REPORT INFORMATION
  Report Type: 
  Country: None (occurrence: None)
  Receive Date: 20070810
  Receipt Date: 20070810
  Transmission Date: 20080115
  Serious: Yes (Hospitalization)
  Sender: FDA-Public Use
  Company Number: None

PATIENT
  Age: 61 Year
  Sex: Female
  Weight: 71 kg

DRUGS (8)
  1. LAPATINIB (GLAXO SMITH KLINE) [Suspect]
     Indication: BREAST CANCER
     Dosage: 7500 MG/ X2 WEEKLY ORAL
     Route: 048
     Dates: start: 20070617, end: 20070730
  2. LAPATINIB (GLAXO SMITH KLINE) [Suspect]
     Indication: OVARIAN CANCER
     Dosage: 7500 MG/ X2 WEEKLY ORAL
     Route: 048
     Dates: start: 20070617, end: 20070730
  3. ABRAXANE [Suspect]
     Indication: BREAST CANCER
     Dosage: 172 MG
     Dates: start: 20070619, end: 20070724
  4. ABRAXANE [Suspect]
     Indication: OVARIAN CANCER
     Dosage: 172 MG
     Dates: start: 20070619, end: 20070724
  5. ZOMETA [Concomitant]
  6. NEUPOGEN [Concomitant]
  7. OXYCODONE HCL [Concomitant]
  8. FAMOTIDINE [Concomitant]

REACTIONS (5)
  - NEUTROPENIA [None]
  - PYREXIA [None]
  - RASH [None]
  - URINARY TRACT INFECTION [None]
  - WHITE BLOOD CELL COUNT DECREASED [None]
